FAERS Safety Report 7296373-5 (Version None)
Quarter: 2011Q1

REPORT INFORMATION
  Report Type: 
  Country: None (occurrence: None)
  Receive Date: 20110211
  Receipt Date: 20110211
  Transmission Date: 20110831
  Serious: Yes (Other)
  Sender: FDA-Public Use
  Company Number: None

PATIENT
  Age: 77 Year
  Sex: Female
  Weight: 52.1637 kg

DRUGS (2)
  1. PRADAXA [Suspect]
     Indication: ATRIAL FIBRILLATION
     Dosage: 1 CAPSULE 75 MG TWICE A DAY SWALLOW CAPSULE WHOLE
     Route: 048
     Dates: start: 20101219, end: 20110126
  2. PRADAXA [Suspect]
     Indication: CEREBROVASCULAR ACCIDENT PROPHYLAXIS
     Dosage: 1 CAPSULE 75 MG TWICE A DAY SWALLOW CAPSULE WHOLE
     Route: 048
     Dates: start: 20101219, end: 20110126

REACTIONS (1)
  - BLOOD URINE PRESENT [None]
